FAERS Safety Report 5127191-1 (Version None)
Quarter: 2006Q4

REPORT INFORMATION
  Report Type: 
  Country: None (occurrence: None)
  Receive Date: 20061013
  Receipt Date: 20060929
  Transmission Date: 20070319
  Serious: Yes (Hospitalization, Other)
  Sender: FDA-Public Use
  Company Number: US-JNJFOC-20060601813

PATIENT
  Sex: Female
  Weight: 72.12 kg

DRUGS (4)
  1. ORTHO EVRA [Suspect]
     Indication: CONTRACEPTION
     Route: 062
  2. HUMALOG [Concomitant]
  3. NPH INSULIN [Concomitant]
  4. VYTORIN [Concomitant]

REACTIONS (8)
  - ANAEMIA [None]
  - DIABETES MELLITUS INADEQUATE CONTROL [None]
  - FATIGUE [None]
  - HAEMOPTYSIS [None]
  - MUSCLE STRAIN [None]
  - PULMONARY EMBOLISM [None]
  - TREATMENT NONCOMPLIANCE [None]
  - VENA CAVA THROMBOSIS [None]
